FAERS Safety Report 21583493 (Version 1)
Quarter: 2022Q4

REPORT INFORMATION
  Report Type: Spontaneous
  Country: US (occurrence: None)
  Receive Date: 20221110
  Receipt Date: 20221110
  Transmission Date: 20230112
  Serious: No
  Sender: FDA-Public Use
  Company Number: None

PATIENT
  Age: 73 Year
  Sex: Female
  Weight: 118.84 kg

DRUGS (1)
  1. COSENTYX [Suspect]
     Active Substance: SECUKINUMAB
     Indication: Psoriasis
     Dosage: FREQUENCY : AS DIRECTED;?INJECT 300MG (2 PENS) SUBCUTANEOUSLY AT WEEK 0, 1, 2, 3?\T\ 4 AS DIRECTED.?
     Route: 058
     Dates: start: 201506

REACTIONS (1)
  - Eye infection [None]
